FAERS Safety Report 10270798 (Version 2)
Quarter: 2014Q3

REPORT INFORMATION
  Report Type: Report from Study
  Country: US (occurrence: US)
  Receive Date: 20140701
  Receipt Date: 20140701
  Transmission Date: 20150326
  Serious: Yes (Life-Threatening, Hospitalization, Other)
  Sender: FDA-Public Use
  Company Number: US-ACTELION-A-US2010-41523

PATIENT
  Age: 76 Year
  Sex: Female

DRUGS (3)
  1. TRACLEER [Suspect]
     Active Substance: BOSENTAN\BOSENTAN MONOHYDRATE
     Indication: PULMONARY ARTERIAL HYPERTENSION
     Dosage: 125 MG, BID
     Route: 048
     Dates: start: 20101126
  2. XARELTO [Concomitant]
     Active Substance: RIVAROXABAN
  3. TRACLEER [Suspect]
     Active Substance: BOSENTAN\BOSENTAN MONOHYDRATE
     Dosage: 62.5 MG, BID
     Route: 048
     Dates: start: 20101026, end: 20101125

REACTIONS (11)
  - Bronchitis viral [Recovering/Resolving]
  - Rash [Unknown]
  - Haematochezia [Recovered/Resolved]
  - Peripheral swelling [Unknown]
  - Anaemia [Recovered/Resolved]
  - Cellulitis [Unknown]
  - No therapeutic response [Unknown]
  - Sinusitis [Not Recovered/Not Resolved]
  - Swelling [Recovered/Resolved]
  - Dyspnoea [Recovering/Resolving]
  - Oedema [Recovered/Resolved]

NARRATIVE: CASE EVENT DATE: 20110130
